FAERS Safety Report 6944957-3 (Version None)
Quarter: 2010Q3

REPORT INFORMATION
  Report Type: 
  Country: None (occurrence: None)
  Receive Date: 20100827
  Receipt Date: 20100818
  Transmission Date: 20110219
  Serious: Yes (Hospitalization)
  Sender: FDA-Public Use
  Company Number: US-ASTRAZENECA-2010SE34250

PATIENT
  Age: 630 Month
  Sex: Male
  Weight: 80.3 kg

DRUGS (6)
  1. CRESTOR [Suspect]
     Indication: BLOOD CHOLESTEROL INCREASED
     Route: 048
     Dates: start: 20090406, end: 20100501
  2. TRILIPIX [Concomitant]
     Indication: CORONARY ARTERY DISEASE
  3. ATENOLOL [Concomitant]
     Indication: HYPERTENSION
  4. PLAVIX [Concomitant]
     Indication: CORONARY ARTERY DISEASE
  5. ASPIRIN [Concomitant]
  6. NITROGLYCERIN [Concomitant]
     Indication: CORONARY ARTERY DISEASE
     Dosage: PRN

REACTIONS (1)
  - TENDON RUPTURE [None]
